FAERS Safety Report 13586416 (Version 1)
Quarter: 2017Q2

REPORT INFORMATION
  Report Type: Spontaneous
  Country: US (occurrence: US)
  Receive Date: 20170526
  Receipt Date: 20170526
  Transmission Date: 20170830
  Serious: Yes (Other)
  Sender: FDA-Public Use
  Company Number: US-BAYER-2017-096130

PATIENT
  Age: 60 Year
  Sex: Female

DRUGS (1)
  1. GADAVIST [Suspect]
     Active Substance: GADOBUTROL
     Indication: SCAN WITH CONTRAST
     Dosage: APPROXIMATELY 2 CC, ONCE
     Route: 037

REACTIONS (4)
  - Muscle spasms [Recovered/Resolved]
  - Off label use [None]
  - Pain in extremity [Recovered/Resolved]
  - Incorrect route of drug administration [None]
